FAERS Safety Report 9246197 (Version 1)
Quarter: 2013Q2

REPORT INFORMATION
  Report Type: Spontaneous
  Country: US (occurrence: US)
  Receive Date: 20130422
  Receipt Date: 20130422
  Transmission Date: 20140414
  Serious: No
  Sender: FDA-Public Use
  Company Number: US-PFIZER INC-2013120564

PATIENT
  Sex: Male

DRUGS (1)
  1. ADVIL [Suspect]
     Indication: SLEEP DISORDER
     Dosage: 2 ADVIL AT NIGHT

REACTIONS (3)
  - Off label use [Unknown]
  - Pre-existing condition improved [Unknown]
  - Therapeutic response unexpected [Unknown]
